FAERS Safety Report 6231291-2 (Version None)
Quarter: 2009Q2

REPORT INFORMATION
  Report Type: 
  Country: None (occurrence: None)
  Receive Date: 20090616
  Receipt Date: 20090610
  Transmission Date: 20091009
  Serious: Yes (Death)
  Sender: FDA-Public Use
  Company Number: DE-AVENTIS-200911529DE

PATIENT
  Sex: Male

DRUGS (2)
  1. TAXOTERE [Suspect]
     Dosage: DOSE: SEVERAL CYCLES
     Route: 042
  2. DIURETICS [Concomitant]
     Indication: DRUG USE FOR UNKNOWN INDICATION
     Dosage: DOSE: NOT REPORTED

REACTIONS (1)
  - FLUID RETENTION [None]
